FAERS Safety Report 4316970-6 (Version None)
Quarter: 2004Q1

REPORT INFORMATION
  Report Type: 
  Country: None (occurrence: None)
  Receive Date: 20040312
  Receipt Date: 20040308
  Transmission Date: 20041129
  Serious: Yes (Hospitalization)
  Sender: FDA-Public Use
  Company Number: US-JNJFOC-20040206047

PATIENT
  Age: 32 Year
  Sex: Female

DRUGS (5)
  1. DURAGESIC [Suspect]
     Indication: PAIN
     Dosage: 75 UG/HR, 1 IN 72 HOUR, TRANSDERMAL; 50 UG/HR, TRANSDERMAL
     Route: 062
     Dates: start: 20040122, end: 20040225
  2. DURAGESIC [Suspect]
     Indication: PAIN
     Dosage: 75 UG/HR, 1 IN 72 HOUR, TRANSDERMAL; 50 UG/HR, TRANSDERMAL
     Route: 062
     Dates: start: 20040225
  3. UNSPECIFIED PAIN MEDICATION (ANALGESICS) [Concomitant]
  4. DILAUDID [Concomitant]
  5. SOMA [Concomitant]

REACTIONS (6)
  - DRUG EFFECT DECREASED [None]
  - FEAR OF DISEASE [None]
  - NERVOUSNESS [None]
  - NONSPECIFIC REACTION [None]
  - PAIN [None]
  - PHARMACEUTICAL PRODUCT COMPLAINT [None]
